FAERS Safety Report 7991349-4 (Version None)
Quarter: 2011Q4

REPORT INFORMATION
  Report Type: 
  Country: None (occurrence: None)
  Receive Date: 20111123
  Receipt Date: 20110929
  Transmission Date: 20120403
  Serious: No
  Sender: FDA-Public Use
  Company Number: 337765

PATIENT
  Age: 61 Year
  Sex: Female

DRUGS (1)
  1. VICTOZA [Suspect]
     Indication: DIABETES MELLITUS
     Dosage: 6 U, QD, SUBCUTANEOUS ; 2 U, QD, SUBCUTANEOUS
     Route: 058

REACTIONS (4)
  - FATIGUE [None]
  - HYPERHIDROSIS [None]
  - BLOOD GLUCOSE DECREASED [None]
  - ASTHENIA [None]
